FAERS Safety Report 24738703 (Version 4)
Quarter: 2025Q2

REPORT INFORMATION
  Report Type: Report from Study
  Country: US (occurrence: US)
  Receive Date: 20241216
  Receipt Date: 20250528
  Transmission Date: 20250717
  Serious: Yes (Hospitalization, Other)
  Sender: NOVARTIS
  Company Number: US-002147023-NVSC2024US237598

PATIENT
  Sex: Female

DRUGS (2)
  1. COSENTYX [Suspect]
     Active Substance: SECUKINUMAB
     Indication: Hidradenitis
     Route: 065
  2. COSENTYX [Suspect]
     Active Substance: SECUKINUMAB
     Indication: Rheumatoid arthritis

REACTIONS (13)
  - Hidradenitis [Unknown]
  - Condition aggravated [Unknown]
  - Type 2 diabetes mellitus [Unknown]
  - Dizziness [Unknown]
  - Urine odour abnormal [Unknown]
  - Dry mouth [Unknown]
  - Skin lesion [Unknown]
  - Wound [Unknown]
  - Mobility decreased [Unknown]
  - Subcutaneous abscess [Unknown]
  - Rash macular [Unknown]
  - Paraesthesia [Unknown]
  - Pain [Unknown]
